FAERS Safety Report 7934433-3 (Version None)
Quarter: 2011Q4

REPORT INFORMATION
  Report Type: 
  Country: None (occurrence: None)
  Receive Date: 20111122
  Receipt Date: 20111114
  Transmission Date: 20120403
  Serious: Yes (Hospitalization)
  Sender: FDA-Public Use
  Company Number: US-GLAXOSMITHKLINE-A0953932A

PATIENT
  Sex: Female
  Weight: 59.4 kg

DRUGS (19)
  1. SIMVASTATIN [Suspect]
     Dosage: 40MG TWICE PER DAY
     Route: 048
  2. TESSALON [Suspect]
     Dosage: 100MG THREE TIMES PER DAY
  3. CARVEDILOL [Suspect]
     Dosage: 50MG PER DAY
  4. INVESTIGATIONAL DRUG [Suspect]
  5. PIOGLITAZONE [Suspect]
     Dosage: 30MG PER DAY
  6. FERROUS GLUCONATE [Suspect]
     Indication: IRON DEFICIENCY
     Dosage: 325MG TWICE PER DAY
     Route: 048
  7. RADIATION [Suspect]
     Dates: start: 20090408
  8. COLACE [Suspect]
     Dosage: 100MG TWICE PER DAY
  9. LORTAB [Suspect]
  10. ASPIRIN [Concomitant]
  11. ZOFRAN [Suspect]
     Route: 048
  12. AMLODIPINE [Suspect]
  13. MEGACE [Suspect]
     Route: 048
  14. SUNITINIB MALATE [Suspect]
     Dosage: 50MG PER DAY
  15. ACTONEL [Concomitant]
  16. CIPROFLOXACIN [Concomitant]
  17. RANITIDINE [Suspect]
     Dosage: 150MG TWICE PER DAY
  18. CITRATE OF MAGNESIA [Suspect]
     Route: 048
  19. ACETAMINOPHEN [Concomitant]

REACTIONS (6)
  - VOMITING [None]
  - MALAISE [None]
  - HEADACHE [None]
  - COGNITIVE DISORDER [None]
  - ABDOMINAL PAIN [None]
  - FATIGUE [None]
